FAERS Safety Report 8566269-7 (Version None)
Quarter: 2012Q3

REPORT INFORMATION
  Report Type: 
  Country: None (occurrence: None)
  Receive Date: 20120803
  Receipt Date: 20111011
  Transmission Date: 20120928
  Serious: No
  Sender: FDA-Public Use
  Company Number: US-ABBOTT-11P-163-0864292-00

PATIENT
  Sex: Male

DRUGS (6)
  1. NIASPAN [Suspect]
     Indication: PRODUCT USED FOR UNKNOWN INDICATION
  2. ASPIRIN [Concomitant]
     Indication: CARDIAC DISORDER
  3. UNKNOWN MEDICATION FOR EYE PROBLEM [Concomitant]
     Indication: RETINAL DISORDER
  4. SHINGLES VACCINE [Concomitant]
     Indication: PRODUCT USED FOR UNKNOWN INDICATION
  5. UNKNOWN MEDICATION FOR EYE PROBLEM [Concomitant]
     Indication: EYE DISORDER
  6. UNKNOWN MEDICATION INJECTIONS [Concomitant]
     Indication: NEOPLASM MALIGNANT

REACTIONS (2)
  - RASH [None]
  - FLUSHING [None]
